FAERS Safety Report 6473610-8 (Version None)
Quarter: 2009Q4

REPORT INFORMATION
  Report Type: 
  Country: None (occurrence: None)
  Receive Date: 20091204
  Receipt Date: 20090219
  Transmission Date: 20100525
  Serious: Yes (Hospitalization, Other)
  Sender: FDA-Public Use
  Company Number: JP-ELI_LILLY_AND_COMPANY-JP200811000287

PATIENT
  Sex: Male

DRUGS (8)
  1. PEMETREXED [Suspect]
     Indication: PLEURAL MESOTHELIOMA MALIGNANT
     Dosage: 750 MG, OTHER
     Route: 042
     Dates: start: 20071115, end: 20071204
  2. PANVITAN [Concomitant]
     Dosage: 1 G, DAILY (1/D)
     Route: 048
     Dates: start: 20071108, end: 20071228
  3. METHYCOBAL [Concomitant]
     Dosage: 1 MG, DAILY (1/D)
     Route: 030
     Dates: start: 20071108, end: 20071108
  4. LASIX [Concomitant]
     Indication: CARDIAC FAILURE
     Dosage: 40 MG, DAILY (1/D)
     Route: 048
     Dates: end: 20080108
  5. OMEPRAZOLE [Concomitant]
     Indication: GASTRIC ULCER
     Dosage: 10 MG, DAILY (1/D)
     Route: 048
     Dates: end: 20080108
  6. DECADRON /00016002/ [Concomitant]
     Indication: PROPHYLAXIS
     Dosage: 8 MG, UNK
     Route: 042
     Dates: start: 20071115, end: 20071204
  7. NASEA [Concomitant]
     Indication: PROPHYLAXIS
     Dosage: 0.3 MG, UNK
     Route: 042
     Dates: start: 20071115, end: 20071204
  8. DIPHENHYDRAMINE HCL [Concomitant]
     Indication: RASH
     Route: 062
     Dates: start: 20071125, end: 20071129

REACTIONS (2)
  - ATRIAL FIBRILLATION [None]
  - NEUTROPHIL COUNT DECREASED [None]
